FAERS Safety Report 5019561-7 (Version None)
Quarter: 2006Q2

REPORT INFORMATION
  Report Type: 
  Country: None (occurrence: None)
  Receive Date: 20060601
  Receipt Date: 20060516
  Transmission Date: 20061013
  Serious: Yes (Other)
  Sender: FDA-Public Use
  Company Number: 8017072

PATIENT

DRUGS (2)
  1. KEPPRA [Suspect]
     Dosage: 500 MG 2/D PO
     Route: 048
  2. LAMOTRIGINE [Suspect]
     Dosage: 300 MG 2/D PO
     Route: 048

REACTIONS (1)
  - HEPATOTOXICITY [None]
